FAERS Safety Report 6804114-8 (Version None)
Quarter: 2010Q2

REPORT INFORMATION
  Report Type: 
  Country: None (occurrence: None)
  Receive Date: 20100628
  Receipt Date: 20070323
  Transmission Date: 20101027
  Serious: No
  Sender: FDA-Public Use
  Company Number: US-PFIZER INC-2006050134

PATIENT
  Sex: Male

DRUGS (1)
  1. CADUET [Suspect]
     Indication: HYPERLIPIDAEMIA
     Dosage: 5/10 MG

REACTIONS (3)
  - BLOOD PRESSURE FLUCTUATION [None]
  - HIGH DENSITY LIPOPROTEIN DECREASED [None]
  - SINUSITIS [None]
